FAERS Safety Report 5789115-3 (Version None)
Quarter: 2008Q2

REPORT INFORMATION
  Report Type: 
  Country: None (occurrence: None)
  Receive Date: 20080626
  Receipt Date: 20080515
  Transmission Date: 20081010
  Serious: Yes (Disabling)
  Sender: FDA-Public Use
  Company Number: PT-JNJFOC-20080605405

PATIENT
  Sex: Male

DRUGS (8)
  1. ZALDIAR [Suspect]
     Indication: INTERVERTEBRAL DISC PROTRUSION
     Route: 048
  2. GABAPENTIN [Suspect]
     Indication: INTERVERTEBRAL DISC PROTRUSION
     Route: 048
  3. DICLOFENAC SODIUM [Concomitant]
     Route: 065
  4. THIOCOLCHICOSIDE [Concomitant]
     Route: 065
  5. ETODOLAC [Concomitant]
     Route: 065
  6. OMEPRAZOLE [Concomitant]
     Route: 065
  7. CLARITHROMYCIN [Concomitant]
     Route: 065
  8. DIAZEPAM [Concomitant]
     Route: 065

REACTIONS (4)
  - PAIN IN EXTREMITY [None]
  - PYREXIA [None]
  - TREMOR [None]
  - WALKING DISABILITY [None]
